FAERS Safety Report 23280462 (Version 1)
Quarter: 2023Q4

REPORT INFORMATION
  Report Type: Spontaneous
  Country: JP (occurrence: JP)
  Receive Date: 20231211
  Receipt Date: 20231211
  Transmission Date: 20240110
  Serious: Yes (Other)
  Sender: FDA-Public Use
  Company Number: JP-Axellia-004986

PATIENT
  Age: 65 Year
  Sex: Female

DRUGS (2)
  1. VANCOMYCIN [Suspect]
     Active Substance: VANCOMYCIN
     Indication: Peritonitis bacterial
     Dosage: STARTING ON DAY 8 OF TREATMENT.
  2. VANCOMYCIN [Suspect]
     Active Substance: VANCOMYCIN
     Indication: Enteritis infectious

REACTIONS (1)
  - Pancytopenia [Unknown]
